FAERS Safety Report 9444233 (Version 1)
Quarter: 2013Q3

REPORT INFORMATION
  Report Type: Spontaneous
  Country: US (occurrence: None)
  Receive Date: 20130725
  Receipt Date: 20130725
  Transmission Date: 20140515
  Serious: Yes (Hospitalization)
  Sender: FDA-Public Use
  Company Number: 2013037019

PATIENT
  Age: 52 Year
  Sex: Male

DRUGS (1)
  1. ALBURX [Suspect]
     Indication: NEPHROTIC SYNDROME
     Route: 042
     Dates: start: 20130710

REACTIONS (3)
  - Chills [None]
  - Enterobacter test positive [None]
  - Product contamination microbial [None]
